FAERS Safety Report 11672749 (Version 1)
Quarter: 2015Q4

REPORT INFORMATION
  Report Type: Spontaneous
  Country: US (occurrence: None)
  Receive Date: 20151027
  Receipt Date: 20151027
  Transmission Date: 20160304
  Serious: Yes (Hospitalization)
  Sender: FDA-Public Use
  Company Number: None

PATIENT
  Age: 2 Month
  Sex: Female
  Weight: 48.99 kg

DRUGS (1)
  1. PROLIA [Suspect]
     Active Substance: DENOSUMAB
     Indication: OSTEOPOROSIS
     Dosage: GIVEN INTO/UNDER THE SKIN; ONE SHOT
     Dates: start: 20151009, end: 20151009

REACTIONS (10)
  - Hypersensitivity [None]
  - Headache [None]
  - Blood calcium decreased [None]
  - Myalgia [None]
  - Arthralgia [None]
  - Hypertension [None]
  - Peripheral swelling [None]
  - Abdominal pain upper [None]
  - Swelling face [None]
  - Back pain [None]

NARRATIVE: CASE EVENT DATE: 20151009
